FAERS Safety Report 7128859-8 (Version None)
Quarter: 2010Q4

REPORT INFORMATION
  Report Type: 
  Country: None (occurrence: None)
  Receive Date: 20101130
  Receipt Date: 20101117
  Transmission Date: 20110411
  Serious: Yes (Death, Hospitalization)
  Sender: FDA-Public Use
  Company Number: A0798039A

PATIENT
  Age: 79 Year
  Sex: Male
  Weight: 79.1 kg

DRUGS (4)
  1. AVANDIA [Suspect]
     Dosage: 2MG PER DAY
     Route: 048
  2. AVANDAMET [Suspect]
     Indication: DIABETES MELLITUS
     Route: 048
     Dates: start: 20040921
  3. HYZAAR [Concomitant]
  4. INSULIN [Concomitant]

REACTIONS (2)
  - CEREBROVASCULAR ACCIDENT [None]
  - DEATH [None]
